FAERS Safety Report 6960089-2 (Version None)
Quarter: 2010Q3

REPORT INFORMATION
  Report Type: 
  Country: None (occurrence: None)
  Receive Date: 20100901
  Receipt Date: 20100820
  Transmission Date: 20110219
  Serious: Yes (Other)
  Sender: FDA-Public Use
  Company Number: PHHY2010US46766

PATIENT
  Sex: Female

DRUGS (1)
  1. EXJADE [Suspect]
     Indication: MYELODYSPLASTIC SYNDROME
     Dosage: 1000 MG, QD
     Route: 048
     Dates: start: 20100710, end: 20100714

REACTIONS (4)
  - ANAEMIA [None]
  - BRAIN HYPOXIA [None]
  - CONFUSIONAL STATE [None]
  - DIARRHOEA [None]
